FAERS Safety Report 26015741 (Version 2)
Quarter: 2025Q4

REPORT INFORMATION
  Report Type: Report from Study
  Country: US (occurrence: US)
  Receive Date: 20251109
  Receipt Date: 20251128
  Transmission Date: 20260118
  Serious: Yes (Other)
  Sender: ABBVIE
  Company Number: US-ABBVIE-6531453

PATIENT
  Age: 45 Year
  Sex: Male
  Weight: 107.95 kg

DRUGS (7)
  1. SKYRIZI [Suspect]
     Active Substance: RISANKIZUMAB-RZAA
     Indication: Crohn^s disease
     Dosage: SOLUTION FOR INJECTION IN PRE-FILLED INJECTOR?FORM STRENGTH: 360 MILLIGRAM
     Route: 058
     Dates: start: 20251031
  2. SKYRIZI [Suspect]
     Active Substance: RISANKIZUMAB-RZAA
     Indication: Crohn^s disease
     Route: 042
     Dates: start: 20250808, end: 20251003
  3. IRON [Concomitant]
     Active Substance: IRON
     Indication: Mineral supplementation
  4. OMEPRAZOLE [Concomitant]
     Active Substance: OMEPRAZOLE
     Indication: Crohn^s disease
     Dosage: UNKNOWN
  5. LAMOTRIGINE [Concomitant]
     Active Substance: LAMOTRIGINE
     Indication: Behaviour disorder
     Dosage: 2 TAB S EVERY DAY
  6. LAMOTRIGINE [Concomitant]
     Active Substance: LAMOTRIGINE
     Indication: Behaviour disorder
     Dosage: 2 TABS EVERY DAY
  7. LAMOTRIGINE [Concomitant]
     Active Substance: LAMOTRIGINE
     Indication: Behaviour disorder
     Dosage: 2 TAB S EVERY DAY

REACTIONS (6)
  - Generalised tonic-clonic seizure [Recovered/Resolved]
  - Device issue [Not Recovered/Not Resolved]
  - Haemorrhage [Recovered/Resolved]
  - Tremor [Recovered/Resolved]
  - Hyperhidrosis [Recovered/Resolved]
  - Dizziness [Recovered/Resolved]

NARRATIVE: CASE EVENT DATE: 20251031
